FAERS Safety Report 7340857-8 (Version None)
Quarter: 2011Q1

REPORT INFORMATION
  Report Type: 
  Country: None (occurrence: None)
  Receive Date: 20110309
  Receipt Date: 20110228
  Transmission Date: 20110831
  Serious: Yes (Other)
  Sender: FDA-Public Use
  Company Number: US-TEVA-268906USA

PATIENT
  Sex: Female
  Weight: 54.48 kg

DRUGS (2)
  1. CICLOSPORIN [Concomitant]
  2. PARAGARD T 380A [Suspect]
     Indication: CONTRACEPTION
     Route: 015
     Dates: start: 20110207

REACTIONS (2)
  - TINNITUS [None]
  - DEAFNESS [None]
